FAERS Safety Report 7042229-2 (Version None)
Quarter: 2010Q4

REPORT INFORMATION
  Report Type: 
  Country: None (occurrence: None)
  Receive Date: 20101013
  Receipt Date: 20100930
  Transmission Date: 20110411
  Serious: Yes (Death)
  Sender: FDA-Public Use
  Company Number: US-WATSON-2010-13109

PATIENT
  Sex: Male

DRUGS (2)
  1. NORCO 10/325 (WATSON LABORATORIES) [Suspect]
     Indication: BACK PAIN
     Dosage: 1 TABLET, TID-QID DURING THE DAY FOR WORK
     Route: 048
     Dates: start: 20100801
  2. OXYCODONE HCL [Suspect]
     Indication: PRODUCT USED FOR UNKNOWN INDICATION
     Dosage: UNK
     Route: 065

REACTIONS (2)
  - DEATH [None]
  - UNRESPONSIVE TO STIMULI [None]
